FAERS Safety Report 6208199-1 (Version None)
Quarter: 2009Q2

REPORT INFORMATION
  Report Type: 
  Country: None (occurrence: None)
  Receive Date: 20090529
  Receipt Date: 20090520
  Transmission Date: 20091009
  Serious: Yes (Other)
  Sender: FDA-Public Use
  Company Number: PHHY2009CA18909

PATIENT
  Sex: Female

DRUGS (1)
  1. ACLASTA [Suspect]
     Indication: OSTEOPOROSIS
     Dosage: UNK
     Dates: start: 20090513

REACTIONS (8)
  - COUGH [None]
  - DIARRHOEA [None]
  - HYPERHIDROSIS [None]
  - HYPERSOMNIA [None]
  - HYPOTENSION [None]
  - OEDEMA PERIPHERAL [None]
  - PNEUMONIA [None]
  - WHEEZING [None]
